FAERS Safety Report 23016001 (Version 1)
Quarter: 2023Q4

REPORT INFORMATION
  Report Type: Spontaneous
  Country: US (occurrence: None)
  Receive Date: 20231001
  Receipt Date: 20231001
  Transmission Date: 20240109
  Serious: Yes (Hospitalization, Other)
  Sender: FDA-Public Use
  Company Number: None

PATIENT
  Age: 28 Year
  Sex: Male
  Weight: 72 kg

DRUGS (3)
  1. TRAZODONE [Suspect]
     Active Substance: TRAZODONE HYDROCHLORIDE
     Indication: Insomnia
     Dosage: FREQUENCY : AS NEEDED;?
     Route: 048
     Dates: start: 20230718, end: 20230720
  2. LITHIUM [Suspect]
     Active Substance: LITHIUM
  3. ZYPREXA [Concomitant]
     Active Substance: OLANZAPINE

REACTIONS (7)
  - Off label use [None]
  - Aggression [None]
  - Delusion [None]
  - Hallucination [None]
  - Suicidal ideation [None]
  - Drug interaction [None]
  - Serotonin syndrome [None]

NARRATIVE: CASE EVENT DATE: 20230719
